FAERS Safety Report 7190573-0 (Version None)
Quarter: 2010Q4

REPORT INFORMATION
  Report Type: 
  Country: None (occurrence: None)
  Receive Date: 20101223
  Receipt Date: 20101215
  Transmission Date: 20110411
  Serious: Yes (Other)
  Sender: FDA-Public Use
  Company Number: GB-JNJFOC-20101206047

PATIENT
  Age: 45 Year
  Sex: Male

DRUGS (4)
  1. INFLIXIMAB, RECOMBINANT [Suspect]
     Indication: PRODUCT USED FOR UNKNOWN INDICATION
     Route: 042
  2. INFLIXIMAB, RECOMBINANT [Suspect]
     Route: 042
  3. HYDROCORTISONE [Concomitant]
     Indication: PREMEDICATION
     Dosage: 15 MINUTES PRIOR TO INFUSION COMMENCING
  4. CHLORPHENIRAMINE [Concomitant]
     Indication: PREMEDICATION
     Dosage: 15 MINUTES PRIOR TO INFUSION COMMENCING

REACTIONS (5)
  - CHEST DISCOMFORT [None]
  - DIZZINESS [None]
  - FLUSHING [None]
  - INFUSION RELATED REACTION [None]
  - MUSCLE TIGHTNESS [None]
